FAERS Safety Report 6587948-7 (Version None)
Quarter: 2010Q1

REPORT INFORMATION
  Report Type: 
  Country: None (occurrence: None)
  Receive Date: 20100201
  Receipt Date: 20090317
  Transmission Date: 20100710
  Serious: Yes (Hospitalization)
  Sender: FDA-Public Use
  Company Number: 2009SS000020

PATIENT
  Age: 27 Year
  Sex: Female

DRUGS (4)
  1. MYOBLOC [Suspect]
     Indication: DYSTONIA
     Dosage: 7500 U;X1;IM 5000 U,X1;IM
     Route: 030
     Dates: start: 20081201, end: 20081201
  2. MYOBLOC [Suspect]
     Indication: WHIPLASH INJURY
     Dosage: 7500 U;X1;IM 5000 U,X1;IM
     Route: 030
     Dates: start: 20081201, end: 20081201
  3. MYOBLOC [Suspect]
     Indication: DYSTONIA
     Dosage: 7500 U;X1;IM 5000 U,X1;IM
     Route: 030
     Dates: start: 20090305, end: 20090305
  4. MYOBLOC [Suspect]
     Indication: WHIPLASH INJURY
     Dosage: 7500 U;X1;IM 5000 U,X1;IM
     Route: 030
     Dates: start: 20090305, end: 20090305

REACTIONS (13)
  - ACCOMMODATION DISORDER [None]
  - BLOOD PRESSURE INCREASED [None]
  - CONSTIPATION [None]
  - DRUG INEFFECTIVE [None]
  - DRY MOUTH [None]
  - DYSPHAGIA [None]
  - DYSPHONIA [None]
  - DYSPNOEA [None]
  - HEADACHE [None]
  - HEART RATE INCREASED [None]
  - URINARY RETENTION [None]
  - URTICARIA [None]
  - VISION BLURRED [None]
